FAERS Safety Report 6340604-2 (Version None)
Quarter: 2009Q3

REPORT INFORMATION
  Report Type: 
  Country: None (occurrence: None)
  Receive Date: 20090902
  Receipt Date: 20090902
  Transmission Date: 20100115
  Serious: Yes (Hospitalization)
  Sender: FDA-Public Use
  Company Number: None

PATIENT
  Age: 61 Year
  Sex: Female

DRUGS (1)
  1. METFORMIN HCL [Suspect]
     Indication: DIABETES MELLITUS
     Dosage: 2 IN AM AND 1 IN EVENING
     Dates: start: 20090501, end: 20090630

REACTIONS (4)
  - BLINDNESS [None]
  - MALAISE [None]
  - RHINORRHOEA [None]
  - SINUS HEADACHE [None]
